FAERS Safety Report 20371067 (Version 2)
Quarter: 2022Q2

REPORT INFORMATION
  Report Type: Spontaneous
  Country: CA (occurrence: CA)
  Receive Date: 20220124
  Receipt Date: 20220407
  Transmission Date: 20220720
  Serious: Yes (Other)
  Sender: FDA-Public Use
  Company Number: CA-OTSUKA-2022_002029

PATIENT
  Sex: Female

DRUGS (2)
  1. ABILIFY MAINTENA [Suspect]
     Active Substance: ARIPIPRAZOLE
     Indication: Product used for unknown indication
     Dosage: UNK
     Route: 065
     Dates: start: 2017
  2. ABILIFY [Suspect]
     Active Substance: ARIPIPRAZOLE
     Indication: Product used for unknown indication
     Dosage: 10 MG
     Route: 048

REACTIONS (16)
  - Schizoaffective disorder [Unknown]
  - Hearing disability [Unknown]
  - Condition aggravated [Unknown]
  - Suffocation feeling [Unknown]
  - Endometriosis [Unknown]
  - Limb discomfort [Unknown]
  - Mental disorder [Unknown]
  - Dysmenorrhoea [Unknown]
  - Mobility decreased [Unknown]
  - Muscle spasms [Unknown]
  - Pain [Unknown]
  - Asthenia [Unknown]
  - Dyskinesia [Unknown]
  - Anxiety [Unknown]
  - Arthralgia [Unknown]
  - Fatigue [Unknown]
